FAERS Safety Report 9552567 (Version 1)
Quarter: 2013Q3

REPORT INFORMATION
  Report Type: Spontaneous
  Country: US (occurrence: None)
  Receive Date: 20130923
  Receipt Date: 20130923
  Transmission Date: 20140515
  Serious: Yes (Hospitalization)
  Sender: FDA-Public Use
  Company Number: 2013P1019354

PATIENT
  Age: 50 Year
  Sex: Female

DRUGS (3)
  1. LAMOTRIGINE [Suspect]
     Indication: MAJOR DEPRESSION
  2. CYCLOBENZAPRINE [Suspect]
     Indication: PAIN MANAGEMENT
  3. ESCITALOPRAM [Concomitant]

REACTIONS (6)
  - Influenza like illness [None]
  - Myalgia [None]
  - Malaise [None]
  - Viral infection [None]
  - Drug reaction with eosinophilia and systemic symptoms [None]
  - Drug eruption [None]
